FAERS Safety Report 5162492-2 (Version None)
Quarter: 2006Q4

REPORT INFORMATION
  Report Type: 
  Country: None (occurrence: None)
  Receive Date: 20061129
  Receipt Date: 20061129
  Transmission Date: 20070319
  Serious: Yes (Hospitalization)
  Sender: FDA-Public Use
  Company Number: None

PATIENT
  Age: 85 Year
  Sex: Female

DRUGS (7)
  1. SEROQUEL [Suspect]
     Dosage: 25 MG; 50 MG Q AM; QPM PO
     Route: 048
  2. SELEGELINE [Concomitant]
  3. ASCORBIC ACID [Concomitant]
  4. SYNTHYOID [Concomitant]
  5. VITAMIN E [Concomitant]
  6. ARICEPT [Concomitant]
  7. CELEBREX [Concomitant]

REACTIONS (2)
  - BRADYCARDIA [None]
  - SYNCOPE [None]
